FAERS Safety Report 6571882-2 (Version None)
Quarter: 2010Q1

REPORT INFORMATION
  Report Type: 
  Country: None (occurrence: None)
  Receive Date: 20100205
  Receipt Date: 20100128
  Transmission Date: 20100710
  Serious: Yes (Hospitalization, Other)
  Sender: FDA-Public Use
  Company Number: BR-ROCHE-378921

PATIENT
  Sex: Female

DRUGS (3)
  1. ROACUTAN [Suspect]
     Indication: DRUG USE FOR UNKNOWN INDICATION
     Dosage: ENTIRE PACKAGE
     Route: 048
     Dates: start: 20040824, end: 20040824
  2. BROMAZEPAM [Suspect]
     Indication: DEPRESSION
     Route: 048
     Dates: start: 20040814, end: 20040824
  3. FLUOXETINE [Suspect]
     Indication: DEPRESSION
     Route: 048
     Dates: start: 20040814, end: 20040824

REACTIONS (4)
  - DEPRESSION [None]
  - OVERDOSE [None]
  - SOMNOLENCE [None]
  - SUICIDE ATTEMPT [None]
